FAERS Safety Report 24384418 (Version 1)
Quarter: 2024Q3

REPORT INFORMATION
  Report Type: Spontaneous
  Country: US (occurrence: None)
  Receive Date: 20240930
  Receipt Date: 20240930
  Transmission Date: 20241016
  Serious: No
  Sender: Public
  Company Number: None

PATIENT
  Age: 78 Year
  Sex: Female

DRUGS (1)
  1. XDEMVY [Suspect]
     Active Substance: LOTILANER
     Dosage: TWICE A DAY OPHTHALMIC
     Route: 047
     Dates: start: 20240927

REACTIONS (4)
  - Feeling abnormal [None]
  - Dry eye [None]
  - Excessive eye blinking [None]
  - Reading disorder [None]

NARRATIVE: CASE EVENT DATE: 20240929
